FAERS Safety Report 7291679-8 (Version None)
Quarter: 2011Q1

REPORT INFORMATION
  Report Type: 
  Country: None (occurrence: None)
  Receive Date: 20110214
  Receipt Date: 20110201
  Transmission Date: 20110831
  Serious: Yes (Hospitalization, Other)
  Sender: FDA-Public Use
  Company Number: FR-ELI_LILLY_AND_COMPANY-FR201102000204

PATIENT
  Sex: Male

DRUGS (9)
  1. GEMZAR [Suspect]
     Dosage: 1250 MG/M2, UNKNOWN, DAY 8
     Route: 042
     Dates: start: 20100519
  2. GEMZAR [Suspect]
     Dosage: 1250 MG/M2, UNKNOWN, DAY 1
     Route: 042
     Dates: start: 20100601
  3. GEMZAR [Suspect]
     Indication: TRANSITIONAL CELL CARCINOMA
     Dosage: 1250 MG/M2, UNKNOWN, DAY 1
     Route: 042
     Dates: start: 20100423, end: 20100601
  4. CISPLATIN [Concomitant]
     Dosage: 70 MG/M2, UNKNOWN, DAY 1
     Route: 042
     Dates: start: 20100601
  5. CISPLATIN [Concomitant]
     Dosage: 70 MG/M2, UNKNOWN, DAY 1
     Route: 042
     Dates: start: 20100511
  6. GEMZAR [Suspect]
     Dosage: 1250 MG/M2, UNKNOWN, DAY 1
     Route: 042
     Dates: start: 20100511
  7. GEMZAR [Suspect]
     Dosage: 1250 MG/M2, UNKNOWN, DAY 1
     Route: 042
     Dates: start: 20100623
  8. CISPLATIN [Concomitant]
     Indication: TRANSITIONAL CELL CARCINOMA
     Dosage: 70 MG/M2, UNKNOWN
     Route: 042
     Dates: start: 20100423, end: 20100601
  9. CISPLATIN [Concomitant]
     Dosage: 70 MG/M2, UNKNOWN, DAY 1ULASTA
     Route: 042
     Dates: start: 20100623

REACTIONS (5)
  - THROMBOCYTOPENIA [None]
  - ANAEMIA [None]
  - FEBRILE NEUTROPENIA [None]
  - URINARY TRACT INFECTION [None]
  - DIARRHOEA [None]
